FAERS Safety Report 7176877-6 (Version None)
Quarter: 2010Q4

REPORT INFORMATION
  Report Type: 
  Country: None (occurrence: None)
  Receive Date: 20101215
  Receipt Date: 20101215
  Transmission Date: 20110411
  Serious: No
  Sender: FDA-Public Use
  Company Number: None

PATIENT
  Age: 64 Year
  Sex: Male
  Weight: 80 kg

DRUGS (1)
  1. LORAZEPAM [Suspect]
     Indication: ACUTE RESPIRATORY FAILURE
     Dosage: 0.5 MG QID PO
     Route: 048
     Dates: start: 20101006, end: 20101009

REACTIONS (3)
  - DYSPNOEA [None]
  - MENTAL STATUS CHANGES [None]
  - RESPIRATORY DEPRESSION [None]
